FAERS Safety Report 5631733-7 (Version None)
Quarter: 2008Q1

REPORT INFORMATION
  Report Type: 
  Country: None (occurrence: None)
  Receive Date: 20080213
  Receipt Date: 20080128
  Transmission Date: 20080703
  Serious: Yes (Hospitalization)
  Sender: FDA-Public Use
  Company Number: 2008JP000090

PATIENT
  Age: 74 Year
  Sex: Female
  Weight: 48 kg

DRUGS (8)
  1. TACROLIMUS [Suspect]
     Indication: RHEUMATOID ARTHRITIS
     Dosage: 1 MG, UID/QD, ORAL
     Route: 048
     Dates: start: 20050825
  2. METHOTREXATE CAPSULE [Concomitant]
  3. FELDENE (PIROXICAM) SUPPOSITORY [Concomitant]
  4. ALFAROL (ALFACALCIDOL) [Concomitant]
  5. NEUROVITAN TABLET [Concomitant]
  6. MUCOSTA (REBAMIPIDE) TABLET [Concomitant]
  7. OMEPRAL TABLET [Concomitant]
  8. NEUER (CETRAXATE HYDROCHLORIDE) CAPSULE [Concomitant]

REACTIONS (1)
  - LUMBAR VERTEBRAL FRACTURE [None]
